FAERS Safety Report 13029337 (Version 2)
Quarter: 2016Q4

REPORT INFORMATION
  Report Type: Spontaneous
  Country: US (occurrence: US)
  Receive Date: 20161215
  Receipt Date: 20161220
  Transmission Date: 20170207
  Serious: No
  Sender: FDA-Public Use
  Company Number: US-BEH-2016075959

PATIENT
  Age: 28 Year
  Sex: Female

DRUGS (2)
  1. RHOPHYLAC [Suspect]
     Active Substance: HUMAN RHO(D) IMMUNE GLOBULIN
     Indication: HAEMORRHAGE
     Dosage: 300 ?G, TOT
     Route: 065
     Dates: start: 20161106, end: 20161106
  2. RHOPHYLAC [Suspect]
     Active Substance: HUMAN RHO(D) IMMUNE GLOBULIN
     Dosage: 300 ?G, TOT
     Route: 065
     Dates: start: 20161208, end: 20161208

REACTIONS (1)
  - Rhesus antibodies positive [Recovered/Resolved]

NARRATIVE: CASE EVENT DATE: 20161209
